FAERS Safety Report 10167839 (Version 2)
Quarter: 2014Q2

REPORT INFORMATION
  Report Type: Spontaneous
  Country: IT (occurrence: IT)
  Receive Date: 20140512
  Receipt Date: 20140515
  Transmission Date: 20141212
  Serious: Yes (Hospitalization)
  Sender: FDA-Public Use
  Company Number: PHHY2014IT056845

PATIENT
  Age: 68 Year
  Sex: Female

DRUGS (8)
  1. TOLEP [Suspect]
     Dosage: UNK UKN, UNK
  2. TOLEP [Suspect]
     Dosage: (TWICE THE EVENING DOSE)
  3. MIRTAZAPINE [Suspect]
     Dosage: 30 MG, UNK
     Route: 048
     Dates: start: 20140428, end: 20140428
  4. MIRTAZAPINE [Suspect]
     Dosage: (TWICE THE EVENING DOSE)
  5. TAVOR (LORAZEPAM) [Suspect]
     Dosage: 1 MG, UNK
     Route: 048
     Dates: start: 20140428, end: 20140428
  6. TAVOR (LORAZEPAM) [Suspect]
     Dosage: (TWICE THE EVENING DOSE)
  7. MIRAPEXIN [Concomitant]
     Dosage: UNK UKN, UNK
  8. FELISON [Concomitant]
     Dosage: UNK UKN, UNK

REACTIONS (2)
  - Sopor [Recovered/Resolved]
  - Incorrect dose administered [Recovered/Resolved]
